FAERS Safety Report 26027107 (Version 3)
Quarter: 2025Q4

REPORT INFORMATION
  Report Type: Report from Study
  Country: US (occurrence: US)
  Receive Date: 20251111
  Receipt Date: 20251222
  Transmission Date: 20260117
  Serious: No
  Sender: MALLINCKRODT
  Company Number: US-MALLINCKRODT-MNK202507053

PATIENT
  Age: 45 Year
  Sex: Female

DRUGS (1)
  1. CORTICOTROPIN [Suspect]
     Active Substance: CORTICOTROPIN
     Indication: Iridocyclitis
     Route: 058
     Dates: end: 20251112

REACTIONS (5)
  - Dizziness [Unknown]
  - Blood cholesterol increased [Unknown]
  - Fatigue [Unknown]
  - Blood glucose increased [Unknown]
  - Hypertension [Unknown]

NARRATIVE: CASE EVENT DATE: 20251106
